FAERS Safety Report 19817221 (Version 1)
Quarter: 2021Q3

REPORT INFORMATION
  Report Type: Report from Study
  Country: NL (occurrence: NL)
  Receive Date: 20210910
  Receipt Date: 20210910
  Transmission Date: 20211014
  Serious: Yes (Hospitalization)
  Sender: FDA-Public Use
  Company Number: NL-TEVA-2021-NL-1950923

PATIENT
  Age: 82 Year
  Sex: Male
  Weight: 69 kg

DRUGS (23)
  1. GRANISETRON [Concomitant]
     Active Substance: GRANISETRON
     Indication: VOMITING
  2. SODIUMCHLORIDE 0.9% [Concomitant]
     Dosage: 1 LITERS DAILY;
     Route: 042
     Dates: start: 20210620, end: 20210630
  3. SODIUMCHLORIDE 0.9% [Concomitant]
     Dosage: 1 LITERS DAILY;
     Route: 042
     Dates: start: 20210819
  4. IRINOTECAN [Suspect]
     Active Substance: IRINOTECAN
     Dosage: 150 MG/M2 DAILY; D1 AND D15 OF 28?DAY CYCLE (150 MG/M2)
     Route: 042
     Dates: start: 20210712, end: 20210712
  5. OCTREOTIDE. [Concomitant]
     Active Substance: OCTREOTIDE
     Dosage: .3 MICROGRAM DAILY;
     Route: 058
     Dates: start: 20210721, end: 20210723
  6. ABBV?621 [Suspect]
     Active Substance: EFTOZANERMIN ALFA
     Dosage: 1.88 MG/KG DAILY; D1 AND D15 OF 28?DAY CYCLE (1.88 MG/KG)
     Route: 042
     Dates: start: 20210810
  7. 5?FLUOROURACIL [Suspect]
     Active Substance: FLUOROURACIL
     Indication: NEOPLASM
     Dosage: 400 MG/M2 DAILY; BOLUS? D1 AND D15 OF 28?DAY CYCLE (400 MG/M2)
     Route: 042
     Dates: start: 20210611, end: 20210611
  8. LERCANIDIPINE [Concomitant]
     Active Substance: LERCANIDIPINE
     Indication: HYPERTENSION
     Dosage: 20 MILLIGRAM DAILY;
     Route: 048
     Dates: start: 20210131, end: 20210716
  9. LERCANIDIPINE [Concomitant]
     Active Substance: LERCANIDIPINE
     Dosage: 20 MILLIGRAM DAILY;
     Route: 048
     Dates: start: 20210723
  10. GRANISETRON [Concomitant]
     Active Substance: GRANISETRON
     Indication: NAUSEA
     Dosage: 1 MILLIGRAM DAILY; 1 AS REQUIRED
     Route: 048
     Dates: start: 20210620
  11. OCTREOTIDE. [Concomitant]
     Active Substance: OCTREOTIDE
     Indication: DIARRHOEA
     Dosage: 300 MICROGRAM DAILY;
     Route: 058
     Dates: start: 20210624, end: 20210629
  12. ENALAPRIL [Concomitant]
     Active Substance: ENALAPRIL
     Indication: HYPERTENSION
     Dosage: 20 MILLIGRAM DAILY;
     Route: 048
     Dates: start: 2017
  13. LOPERAMIDE [Concomitant]
     Active Substance: LOPERAMIDE
     Indication: DIARRHOEA
     Dosage: 2 MILLIGRAM DAILY;
     Route: 048
     Dates: start: 20210618
  14. ABBV?621 [Suspect]
     Active Substance: EFTOZANERMIN ALFA
     Dosage: 3.75 MG/KG DAILY; D1 AND D15 OF 28?DAY CYCLE (3.75 MG/KG)
     Route: 042
     Dates: start: 20210611, end: 20210611
  15. IRINOTECAN [Suspect]
     Active Substance: IRINOTECAN
     Dosage: 120 MG/M2 DAILY; D1 AND D15 OF 28?DAY CYCLE (120 MG/M2)
     Route: 042
     Dates: start: 20210810, end: 20210810
  16. ABBV?621 [Suspect]
     Active Substance: EFTOZANERMIN ALFA
     Dosage: 2.5 MG/KG DAILY; D1 AND D15 OF 28?DAY CYCLE (2.5 MG/KG)
     Route: 042
     Dates: start: 20210712, end: 20210712
  17. IRINOTECAN [Suspect]
     Active Substance: IRINOTECAN
     Dosage: 180 MG/M2 DAILY; D1 AND D15 OF 28?DAY CYCLE (180 MG/M2)
     Route: 042
     Dates: start: 20210611, end: 20210611
  18. 5?FLUOROURACIL [Suspect]
     Active Substance: FLUOROURACIL
     Dosage: 2400 MG/M2 DAILY; D1 AND D15 OF 28?DAY CYCLE (2400 MG/M2)
     Route: 042
     Dates: start: 20210611, end: 20210613
  19. 5?FLUOROURACIL [Suspect]
     Active Substance: FLUOROURACIL
     Dosage: 1920 MG/M2 DAILY; D1 AND D15 OF 28?DAY CYCLE (1920 MG/M2)
     Route: 042
     Dates: start: 20210712, end: 20210714
  20. 5?FLUOROURACIL [Suspect]
     Active Substance: FLUOROURACIL
     Dosage: 1600 MG/M2 DAILY; D1 AND D15 OF 28?DAY CYCLE (1600 MG/M2)
     Route: 042
     Dates: start: 20210810, end: 20210812
  21. METOCLOPRAMIDE. [Concomitant]
     Active Substance: METOCLOPRAMIDE
     Indication: VOMITING
  22. LEUCOVORIN. [Suspect]
     Active Substance: LEUCOVORIN
     Indication: NEOPLASM
     Dosage: D1 AND D15 OF 28?DAY CYCLE (400 MG/M2)
     Route: 042
     Dates: start: 20210611, end: 20210611
  23. METOCLOPRAMIDE. [Concomitant]
     Active Substance: METOCLOPRAMIDE
     Indication: NAUSEA
     Dosage: 10 MILLIGRAM DAILY; 1 AS REQUIRED
     Route: 048
     Dates: start: 20210618

REACTIONS (1)
  - Diarrhoea [Not Recovered/Not Resolved]

NARRATIVE: CASE EVENT DATE: 20210815
